FAERS Safety Report 15731399 (Version 2)
Quarter: 2019Q1

REPORT INFORMATION
  Report Type: Report from Study
  Country: US (occurrence: US)
  Receive Date: 20181217
  Receipt Date: 20190103
  Transmission Date: 20190417
  Serious: Yes (Hospitalization, Other)
  Sender: FDA-Public Use
  Company Number: US-SHIRE-US201848385

PATIENT
  Age: 44 Year
  Sex: Female

DRUGS (2)
  1. GATTEX [Suspect]
     Active Substance: TEDUGLUTIDE\WATER
     Dosage: 2.84 MG, 1X/DAY:QD
     Route: 058
     Dates: start: 20181118
  2. GATTEX [Suspect]
     Active Substance: TEDUGLUTIDE\WATER
     Indication: SHORT-BOWEL SYNDROME
     Dosage: 0.2800 (UNIT UNKNOWN)
     Route: 065

REACTIONS (1)
  - Vascular device infection [Recovering/Resolving]

NARRATIVE: CASE EVENT DATE: 20181210
